FAERS Safety Report 8061887-7 (Version None)
Quarter: 2012Q1

REPORT INFORMATION
  Report Type: 
  Country: None (occurrence: None)
  Receive Date: 20120117
  Receipt Date: 20111222
  Transmission Date: 20120608
  Serious: Yes (Hospitalization)
  Sender: FDA-Public Use
  Company Number: 12AE001

PATIENT
  Sex: Female

DRUGS (1)
  1. ACETAMINOPHEN AND, DIPH HCL AND  PE HCL [Suspect]
     Indication: RHINORRHOEA
     Dosage: 1 TAB/DAY; 2 TABLETS/DAY
     Dates: start: 20111206, end: 20111207

REACTIONS (5)
  - ROAD TRAFFIC ACCIDENT [None]
  - TRANSIENT ISCHAEMIC ATTACK [None]
  - FEELING ABNORMAL [None]
  - VISUAL IMPAIRMENT [None]
  - AMNESIA [None]
